FAERS Safety Report 9387094 (Version 2)
Quarter: 2014Q4

REPORT INFORMATION
  Report Type: Spontaneous
  Country: DK (occurrence: DK)
  Receive Date: 20130708
  Receipt Date: 20141105
  Transmission Date: 20150529
  Serious: Yes (Life-Threatening, Hospitalization)
  Sender: FDA-Public Use
  Company Number: PHHY2013DK018175

PATIENT
  Age: 15 Year
  Sex: Female

DRUGS (3)
  1. MALONETTA [Suspect]
     Active Substance: ETHINYL ESTRADIOL\LEVONORGESTREL
     Indication: PROPHYLAXIS
     Dosage: 1 DF-TABLET DAILY DOSE
     Route: 048
     Dates: start: 20120522, end: 20121113
  2. MALONETTA [Suspect]
     Active Substance: ETHINYL ESTRADIOL\LEVONORGESTREL
     Indication: CONTRACEPTION
  3. RIGEVIDON [Suspect]
     Active Substance: ETHINYL ESTRADIOL\LEVONORGESTREL
     Indication: CONTRACEPTION
     Route: 048
     Dates: start: 20120522, end: 20121113

REACTIONS (10)
  - Weight decreased [Unknown]
  - Pulmonary embolism [Recovered/Resolved]
  - Mental disorder [Unknown]
  - Stress [Unknown]
  - Disturbance in attention [Unknown]
  - Dyspnoea [Recovered/Resolved]
  - Blood pressure increased [Unknown]
  - Cor pulmonale acute [Recovered/Resolved]
  - Malaise [Unknown]
  - Pain [Unknown]

NARRATIVE: CASE EVENT DATE: 20121113
